FAERS Safety Report 6954180-4 (Version None)
Quarter: 2010Q3

REPORT INFORMATION
  Report Type: 
  Country: None (occurrence: None)
  Receive Date: 20100829
  Receipt Date: 20100707
  Transmission Date: 20110219
  Serious: No
  Sender: FDA-Public Use
  Company Number: US-ABBOTT-10P-163-0656627-00

PATIENT
  Sex: Female
  Weight: 81.72 kg

DRUGS (4)
  1. NIASPAN [Suspect]
     Indication: LOW DENSITY LIPOPROTEIN INCREASED
     Route: 048
     Dates: start: 20100624, end: 20100701
  2. NIASPAN [Suspect]
     Route: 048
     Dates: start: 20100702, end: 20100703
  3. SYNTHROID [Concomitant]
     Indication: HYPOTHYROIDISM
  4. FISH OIL [Concomitant]
     Indication: BLOOD CHOLESTEROL INCREASED

REACTIONS (4)
  - BURNING SENSATION [None]
  - CONTUSION [None]
  - FLUSHING [None]
  - PAIN OF SKIN [None]
